FAERS Safety Report 8540363-9 (Version None)
Quarter: 2012Q3

REPORT INFORMATION
  Report Type: 
  Country: None (occurrence: None)
  Receive Date: 20120726
  Receipt Date: 20110822
  Transmission Date: 20120928
  Serious: No
  Sender: FDA-Public Use
  Company Number: US-ASTRAZENECA-2010SE30244

PATIENT
  Age: 73 Year
  Sex: Female
  Weight: 77.1 kg

DRUGS (15)
  1. SEROQUEL [Suspect]
     Indication: DEPRESSION
     Dosage: 50 MG IN THE MORNING AND 100 MG IN THE EVENING
     Route: 048
     Dates: start: 20090901, end: 20100301
  2. SEROQUEL [Suspect]
     Route: 048
     Dates: start: 20110701
  3. PREMARIN [Concomitant]
     Route: 065
  4. SEROQUEL [Suspect]
     Route: 048
     Dates: start: 20100101, end: 20110101
  5. SEROQUEL [Suspect]
     Route: 048
     Dates: start: 20110701
  6. ACTONEL [Concomitant]
     Route: 065
  7. SEROQUEL [Suspect]
     Route: 048
     Dates: start: 20100101, end: 20110101
  8. IBUPROFEN [Concomitant]
  9. SEROQUEL [Suspect]
     Route: 048
     Dates: start: 20110701
  10. WELLBUTRIN [Concomitant]
     Indication: AMNESIA
     Route: 048
     Dates: start: 20110101
  11. ALBUTEROL [Concomitant]
  12. SYMBICORT [Concomitant]
     Indication: ASTHMA
     Route: 055
  13. SEROQUEL [Suspect]
     Indication: AMNESIA
     Dosage: 50 MG IN THE MORNING AND 100 MG IN THE EVENING
     Route: 048
     Dates: start: 20090901, end: 20100301
  14. SEROQUEL [Suspect]
     Indication: ANXIETY
     Dosage: 50 MG IN THE MORNING AND 100 MG IN THE EVENING
     Route: 048
     Dates: start: 20090901, end: 20100301
  15. SEROQUEL [Suspect]
     Route: 048
     Dates: start: 20100101, end: 20110101

REACTIONS (13)
  - SOMNOLENCE [None]
  - DYSPNOEA [None]
  - DRY MOUTH [None]
  - FEELING ABNORMAL [None]
  - AMNESIA [None]
  - HANGOVER [None]
  - DRUG DOSE OMISSION [None]
  - ACTIVITIES OF DAILY LIVING IMPAIRED [None]
  - OFF LABEL USE [None]
  - DISTURBANCE IN ATTENTION [None]
  - MIDDLE INSOMNIA [None]
  - WRONG TECHNIQUE IN DRUG USAGE PROCESS [None]
  - GAIT DISTURBANCE [None]
